FAERS Safety Report 6522899-5 (Version None)
Quarter: 2009Q4

REPORT INFORMATION
  Report Type: 
  Country: None (occurrence: None)
  Receive Date: 20091222
  Receipt Date: 20091213
  Transmission Date: 20100525
  Serious: Yes (Other)
  Sender: FDA-Public Use
  Company Number: 1000010875

PATIENT
  Sex: Female

DRUGS (3)
  1. MEMANTINE HCL [Suspect]
  2. REMINYL [Concomitant]
  3. EFFEXOR [Concomitant]

REACTIONS (1)
  - BLOOD AMYLASE INCREASED [None]
